FAERS Safety Report 11047018 (Version 1)
Quarter: 2015Q2

REPORT INFORMATION
  Report Type: Spontaneous
  Country: US (occurrence: None)
  Receive Date: 20150417
  Receipt Date: 20150417
  Transmission Date: 20150821
  Serious: Yes (Life-Threatening, Hospitalization)
  Sender: FDA-Public Use
  Company Number: None

PATIENT
  Age: 81 Year
  Sex: Male
  Weight: 78.5 kg

DRUGS (1)
  1. WARFARIN [Suspect]
     Active Substance: WARFARIN
     Indication: ATRIAL FIBRILLATION
     Dosage: 5 MG, OTHER
     Route: 048
     Dates: start: 20130806, end: 20150404

REACTIONS (4)
  - Haemoptysis [None]
  - Respiratory failure [None]
  - Aspiration [None]
  - International normalised ratio increased [None]

NARRATIVE: CASE EVENT DATE: 20150404
